FAERS Safety Report 6786490-8 (Version None)
Quarter: 2010Q2

REPORT INFORMATION
  Report Type: 
  Country: None (occurrence: None)
  Receive Date: 20100623
  Receipt Date: 20100617
  Transmission Date: 20101027
  Serious: Yes (Hospitalization)
  Sender: FDA-Public Use
  Company Number: B0657474A

PATIENT
  Sex: Female

DRUGS (20)
  1. AUGMENTIN '125' [Suspect]
     Indication: DRUG USE FOR UNKNOWN INDICATION
     Dosage: 2G PER DAY
     Route: 042
     Dates: start: 20091201, end: 20091201
  2. SUFENTA PRESERVATIVE FREE [Suspect]
     Route: 042
     Dates: start: 20091201, end: 20091201
  3. PROPOFOL [Suspect]
     Route: 042
     Dates: start: 20091201, end: 20091201
  4. ATRACURIUM [Suspect]
     Route: 042
     Dates: start: 20091201, end: 20091201
  5. KETAMINE [Suspect]
     Route: 042
     Dates: start: 20091201, end: 20091201
  6. NICARDIPINE HYDROCHLORIDE [Suspect]
     Dosage: 1MG PER DAY
     Route: 042
     Dates: start: 20091201, end: 20091201
  7. SEVORANE [Suspect]
     Route: 055
     Dates: start: 20091201, end: 20091201
  8. DROPERIDOL [Suspect]
     Dosage: 1.25MG PER DAY
     Route: 042
     Dates: start: 20091201, end: 20091201
  9. NAROPIN [Suspect]
     Indication: DRUG USE FOR UNKNOWN INDICATION
     Dosage: 15MG PER DAY
     Route: 026
     Dates: start: 20091201, end: 20091201
  10. NEURONTIN [Suspect]
     Indication: PREMEDICATION
     Route: 048
     Dates: start: 20091130, end: 20091201
  11. BETADINE [Suspect]
     Route: 050
     Dates: start: 20091130, end: 20091201
  12. BETADINE [Suspect]
     Indication: PREOPERATIVE CARE
     Route: 067
     Dates: start: 20091201, end: 20091201
  13. NORMACOL [Suspect]
     Indication: PREMEDICATION
     Route: 054
     Dates: start: 20091130, end: 20091130
  14. VENTOLIN [Concomitant]
     Route: 065
  15. FLIXOTIDE [Concomitant]
     Route: 065
  16. FORADIL [Concomitant]
     Route: 065
  17. AERIUS [Concomitant]
     Route: 065
  18. LOVENOX [Concomitant]
     Dosage: .4ML PER DAY
     Route: 065
     Dates: start: 20091130, end: 20091203
  19. RINGER'S [Concomitant]
     Dosage: 2L PER DAY
     Route: 065
     Dates: start: 20091201, end: 20091201
  20. GLUCOSE + POTASSIUM CHLORIDE + SODIUM CHLORIDE [Concomitant]
     Route: 065
     Dates: start: 20091201, end: 20091201

REACTIONS (3)
  - BLOOD CREATININE INCREASED [None]
  - PRODUCT QUALITY ISSUE [None]
  - RENAL FAILURE ACUTE [None]
